FAERS Safety Report 8533700-2 (Version None)
Quarter: 2012Q3

REPORT INFORMATION
  Report Type: 
  Country: None (occurrence: None)
  Receive Date: 20120724
  Receipt Date: 20120717
  Transmission Date: 20120928
  Serious: Yes (Hospitalization, Other)
  Sender: FDA-Public Use
  Company Number: US-BAYER-2012-072117

PATIENT
  Age: 70 Year
  Sex: Female
  Weight: 54 kg

DRUGS (1)
  1. ASPIRIN [Suspect]
     Indication: HEADACHE
     Dosage: 2 DF, PRN
     Route: 048
     Dates: start: 20110101, end: 20120709

REACTIONS (7)
  - BURN OF INTERNAL ORGANS [None]
  - THROAT IRRITATION [None]
  - DRY THROAT [None]
  - FOREIGN BODY [None]
  - CHOKING [None]
  - SPEECH DISORDER [None]
  - DYSPNOEA [None]
